FAERS Safety Report 5445659-5 (Version None)
Quarter: 2007Q3

REPORT INFORMATION
  Report Type: 
  Country: None (occurrence: None)
  Receive Date: 20070904
  Receipt Date: 20070824
  Transmission Date: 20080115
  Serious: Yes (Hospitalization, Other)
  Sender: FDA-Public Use
  Company Number: 163-C5013-06050101

PATIENT
  Age: 65 Year
  Sex: Female
  Weight: 70.9 kg

DRUGS (5)
  1. CC-5013 (LENALIDOMIDE) (CAPSULES) [Suspect]
     Indication: MULTIPLE MYELOMA
     Dosage: 25 MG, QD ON DAYS 1-21, EVERY 28 DAYS, ORAL
     Route: 048
     Dates: start: 20060105
  2. DEXAMETHASONE 0.5MG TAB [Suspect]
     Indication: MULTIPLE MYELOMA
     Dosage: 40  MG, QD ON DAYS 1, 8M 15 + 22 Q28D, ORAL
     Route: 048
     Dates: start: 20060105, end: 20060421
  3. ASPIRIN [Concomitant]
  4. LOVENOX [Concomitant]
  5. COUMADIN [Concomitant]

REACTIONS (4)
  - DIVERTICULITIS [None]
  - ENTEROCOLITIS INFECTIOUS [None]
  - HYPERKALAEMIA [None]
  - NEUTROPENIA [None]
